FAERS Safety Report 10983739 (Version 1)
Quarter: 2015Q2

REPORT INFORMATION
  Report Type: Spontaneous
  Country: DK (occurrence: DK)
  Receive Date: 20150403
  Receipt Date: 20150403
  Transmission Date: 20150821
  Serious: Yes (Other)
  Sender: FDA-Public Use
  Company Number: DK-BAUSCH-BL-2015-010282

PATIENT
  Age: 52 Year
  Sex: Male

DRUGS (2)
  1. NITROGLYCERINE [Suspect]
     Active Substance: NITROGLYCERIN
     Indication: PRODUCT USED FOR UNKNOWN INDICATION
     Route: 042
  2. NITROGLYCERINE [Suspect]
     Active Substance: NITROGLYCERIN
     Route: 060

REACTIONS (2)
  - Acute myocardial infarction [Unknown]
  - Blood pressure systolic decreased [Unknown]
